FAERS Safety Report 7804658-6 (Version None)
Quarter: 2011Q4

REPORT INFORMATION
  Report Type: 
  Country: None (occurrence: None)
  Receive Date: 20111010
  Receipt Date: 20111003
  Transmission Date: 20120403
  Serious: Yes (Hospitalization)
  Sender: FDA-Public Use
  Company Number: US-ELI_LILLY_AND_COMPANY-US201109001969

PATIENT
  Sex: Male

DRUGS (9)
  1. ZANTAC [Concomitant]
  2. GLIPIZIDE [Concomitant]
  3. ALLOPURINOL [Concomitant]
  4. ASPIRIN [Concomitant]
  5. FUROSEMIDE [Concomitant]
  6. ADCIRCA [Suspect]
     Indication: COR PULMONALE CHRONIC
     Dosage: 40 MG, QD
     Dates: start: 20110509, end: 20110801
  7. ZAROXOLYN [Concomitant]
  8. JANUVIA [Concomitant]
  9. LISINOPRIL [Concomitant]

REACTIONS (2)
  - BLOOD PRESSURE INCREASED [None]
  - DYSPNOEA [None]
